FAERS Safety Report 5783197-0 (Version None)
Quarter: 2008Q2

REPORT INFORMATION
  Report Type: 
  Country: None (occurrence: None)
  Receive Date: 20080605
  Receipt Date: 20080313
  Transmission Date: 20081010
  Serious: No
  Sender: FDA-Public Use
  Company Number: A0715133A

PATIENT

DRUGS (3)
  1. ALLI [Suspect]
  2. METFORMIN HCL [Concomitant]
  3. VITAMIN D [Concomitant]

REACTIONS (3)
  - CHANGE OF BOWEL HABIT [None]
  - MALAISE [None]
  - THERAPEUTIC RESPONSE UNEXPECTED [None]
